FAERS Safety Report 4602218-1 (Version None)
Quarter: 2005Q2

REPORT INFORMATION
  Report Type: 
  Country: None (occurrence: None)
  Receive Date: 20050215
  Receipt Date: 20031030
  Transmission Date: 20051028
  Serious: Yes (Hospitalization)
  Sender: FDA-Public Use
  Company Number: 2003183630US

PATIENT
  Age: 46 Year
  Sex: Female
  Weight: 63.5 kg

DRUGS (7)
  1. DAYPRO [Suspect]
     Indication: RHEUMATOID ARTHRITIS
     Dates: end: 20030801
  2. ETANERCEPT (ETANERCEPT) [Suspect]
     Indication: RHEUMATOID ARTHRITIS
     Dosage: 25 MG, BIWEEKLY, SUBCUTANEOUS
     Route: 058
     Dates: start: 19990601, end: 20030801
  3. CITALOPRAM HYDROBROMIDE [Concomitant]
  4. LEVOTHYROXINE SODIUM [Concomitant]
  5. FLUTICASONE PROPIONATE [Concomitant]
  6. ALBUTEROL SULFATE [Concomitant]
  7. VITAMINS [Concomitant]

REACTIONS (2)
  - GLOMERULONEPHRITIS MEMBRANOUS [None]
  - URINARY TRACT INFECTION [None]
